FAERS Safety Report 20185281 (Version 1)
Quarter: 2021Q4

REPORT INFORMATION
  Report Type: Other
  Country: DE (occurrence: DE)
  Receive Date: 20211215
  Receipt Date: 20211215
  Transmission Date: 20220303
  Serious: Yes (Congenital Anomaly, Other)
  Sender: FDA-Public Use
  Company Number: DE-MACLEODS PHARMACEUTICALS US LTD-MAC2021033677

PATIENT

DRUGS (2)
  1. ARIPIPRAZOLE [Suspect]
     Active Substance: ARIPIPRAZOLE
     Indication: Product used for unknown indication
     Dosage: 5 MILLIGRAM, QD EXPOSURE AT 1 TRIMESTER) (0. - 40. GESTATIONAL WEEK)
     Route: 064
     Dates: start: 20201020, end: 20210727
  2. QUETIAPINE [Suspect]
     Active Substance: QUETIAPINE
     Indication: Product used for unknown indication
     Dosage: 50 MILLIGRAM, QD (EXPOSURE AT 1 TRIMESTER) (0. - 40. GESTATIONAL WEEK)
     Route: 064
     Dates: start: 20201020, end: 20210727

REACTIONS (7)
  - Enterococcal sepsis [Recovered/Resolved]
  - Neonatal hypotension [Recovered/Resolved]
  - Pulmonary artery stenosis congenital [Unknown]
  - Atrial septal defect [Unknown]
  - Meconium aspiration syndrome [Recovered/Resolved]
  - Right ventricular false tendon [Unknown]
  - Foetal exposure during pregnancy [Unknown]

NARRATIVE: CASE EVENT DATE: 20210727
